FAERS Safety Report 4977722-7 (Version None)
Quarter: 2006Q1

REPORT INFORMATION
  Report Type: 
  Country: None (occurrence: None)
  Receive Date: 20060215
  Receipt Date: 20050705
  Transmission Date: 20060701
  Serious: Yes (Death, Hospitalization)
  Sender: FDA-Public Use
  Company Number: MC200500492

PATIENT
  Age: 78 Year
  Sex: Male

DRUGS (4)
  1. ANGIOMAX [Suspect]
     Indication: PERCUTANEOUS CORONARY INTERVENTION
     Dosage: 52.5 MG (0.75 MG/KG), BOLUS, IV BOLUS
     Route: 040
     Dates: start: 20050516, end: 20050516
  2. ANGIOMAX [Suspect]
     Dosage: 1.75 MG/KG, HR (25 CC/HR), INTRAVENOUS
     Route: 042
     Dates: start: 20050516, end: 20050516
  3. PLAVIX [Concomitant]
  4. ENTERIC ASPIRIN (ACETYLSALICYLIC ACID) [Concomitant]

REACTIONS (1)
  - HAEMORRHAGE INTRACRANIAL [None]
